FAERS Safety Report 17783772 (Version 2)
Quarter: 2021Q3

REPORT INFORMATION
  Report Type: Spontaneous
  Country: US (occurrence: US)
  Receive Date: 20200514
  Receipt Date: 20210901
  Transmission Date: 20211014
  Serious: Yes (Other)
  Sender: FDA-Public Use
  Company Number: US-PFIZER INC-2020192315

PATIENT
  Age: 48 Year
  Sex: Female
  Weight: 54.43 kg

DRUGS (2)
  1. DIAZEPAM. [Concomitant]
     Active Substance: DIAZEPAM
     Dosage: UNK
  2. LYRICA [Suspect]
     Active Substance: PREGABALIN
     Indication: NEURALGIA
     Dosage: 100 MG, 2X/DAY (100MG CAPSULE TWICE A DAY BY MOUTH)
     Route: 048
     Dates: start: 2008

REACTIONS (4)
  - Therapeutic response unexpected [Unknown]
  - Diabetes mellitus [Unknown]
  - Fatigue [Unknown]
  - Pre-existing condition improved [Unknown]
